FAERS Safety Report 7971412-4 (Version None)
Quarter: 2011Q4

REPORT INFORMATION
  Report Type: 
  Country: None (occurrence: None)
  Receive Date: 20111212
  Receipt Date: 20111205
  Transmission Date: 20120403
  Serious: Yes (Hospitalization, Other)
  Sender: FDA-Public Use
  Company Number: US-ABBOTT-11P-163-0881622-00

PATIENT
  Age: 42 Year
  Sex: Male

DRUGS (1)
  1. HUMIRA [Suspect]
     Indication: CROHN'S DISEASE
     Dates: start: 20080101

REACTIONS (6)
  - BLOOD PRESSURE INCREASED [None]
  - DIALYSIS [None]
  - DEHYDRATION [None]
  - CROHN'S DISEASE [None]
  - PAIN [None]
  - ASTHENIA [None]
